FAERS Safety Report 10474093 (Version 4)
Quarter: 2014Q4

REPORT INFORMATION
  Report Type: Report from Study
  Country: JP (occurrence: JP)
  Receive Date: 20140924
  Receipt Date: 20141219
  Transmission Date: 20150528
  Serious: Yes (Other)
  Sender: FDA-Public Use
  Company Number: PHHY2014JP001854

PATIENT
  Age: 40 Year
  Sex: Female

DRUGS (14)
  1. CLOZARIL [Suspect]
     Active Substance: CLOZAPINE
     Indication: SCHIZOPHRENIA, RESIDUAL TYPE
     Dosage: 12.5 MG,
     Route: 048
     Dates: start: 20121227, end: 20130102
  2. CLOZARIL [Suspect]
     Active Substance: CLOZAPINE
     Dosage: 25 MG, QD
     Route: 048
     Dates: start: 20130103, end: 20130109
  3. GASMOTIN [Concomitant]
     Active Substance: MOSAPRIDE CITRATE
     Indication: SCHIZOPHRENIA, RESIDUAL TYPE
     Dosage: 15 MG
     Route: 048
     Dates: start: 20131228
  4. CLOZARIL [Suspect]
     Active Substance: CLOZAPINE
     Dosage: 125 MG, QD
     Route: 048
     Dates: end: 20131227
  5. CLOZARIL [Suspect]
     Active Substance: CLOZAPINE
     Dosage: 150 MG, QD
     Route: 048
     Dates: start: 20130207, end: 20130213
  6. CLOZARIL [Suspect]
     Active Substance: CLOZAPINE
     Dosage: 200 MG QD
     Route: 048
     Dates: start: 20130221, end: 20130313
  7. CLOZARIL [Suspect]
     Active Substance: CLOZAPINE
     Dosage: 75 MG, QD
     Route: 048
     Dates: start: 20130117, end: 20130123
  8. CLOZARIL [Suspect]
     Active Substance: CLOZAPINE
     Dosage: 100 MG,QD
     Route: 048
     Dates: start: 20130124, end: 20130130
  9. CLOZARIL [Suspect]
     Active Substance: CLOZAPINE
     Dosage: 125 MG, QD
     Route: 048
     Dates: start: 20130131, end: 20130206
  10. CLOZARIL [Suspect]
     Active Substance: CLOZAPINE
     Dosage: 100MG, QD
     Route: 048
     Dates: start: 20130314, end: 20130320
  11. TSUMURA BYAKKOKANINJINTO [Concomitant]
     Indication: SCHIZOPHRENIA, RESIDUAL TYPE
     Dosage: UNK
     Route: 065
  12. CLOZARIL [Suspect]
     Active Substance: CLOZAPINE
     Dosage: 50 MG, QD
     Route: 048
     Dates: start: 20130110, end: 20130116
  13. CLOZARIL [Suspect]
     Active Substance: CLOZAPINE
     Dosage: 150 MG QD
     Route: 048
     Dates: start: 20130321
  14. CLOZARIL [Suspect]
     Active Substance: CLOZAPINE
     Dosage: 175 MG, QD
     Route: 048
     Dates: start: 20130214, end: 20130220

REACTIONS (13)
  - Blood creatine phosphokinase increased [Unknown]
  - Neutrophil count increased [Unknown]
  - Enterocolitis infectious [Unknown]
  - Ileus [Recovered/Resolved]
  - Norovirus test positive [None]
  - Constipation [Recovering/Resolving]
  - White blood cell count increased [Unknown]
  - Diarrhoea [Recovered/Resolved]
  - Enteritis infectious [Unknown]
  - Hepatic function abnormal [Unknown]
  - Seizure [Recovered/Resolved]
  - Subileus [Recovering/Resolving]
  - Anaemia [Unknown]

NARRATIVE: CASE EVENT DATE: 20130311
